FAERS Safety Report 5948737-7 (Version None)
Quarter: 2008Q4

REPORT INFORMATION
  Report Type: 
  Country: None (occurrence: None)
  Receive Date: 20081111
  Receipt Date: 20081110
  Transmission Date: 20090506
  Serious: Yes (Other)
  Sender: FDA-Public Use
  Company Number: US-RB-006027-08

PATIENT
  Age: 23 Year
  Sex: Female

DRUGS (1)
  1. SUBOXONE [Suspect]
     Indication: DRUG DEPENDENCE
     Dosage: UNKNOWN DOSE OR FREQUENCY
     Route: 065

REACTIONS (1)
  - CONVULSION [None]
